FAERS Safety Report 12460047 (Version 4)
Quarter: 2016Q4

REPORT INFORMATION
  Report Type: Spontaneous
  Country: US (occurrence: US)
  Receive Date: 20160613
  Receipt Date: 20161103
  Transmission Date: 20170207
  Serious: No
  Sender: FDA-Public Use
  Company Number: US-PFIZER INC-2016280384

PATIENT
  Age: 55 Year
  Sex: Female
  Weight: 72.57 kg

DRUGS (31)
  1. EFFEXOR XR [Suspect]
     Active Substance: VENLAFAXINE HYDROCHLORIDE
     Indication: DEPRESSION
     Dosage: 37.5 MG, 1X/DAY (IN THE MORNING)
     Route: 048
     Dates: start: 2016, end: 2016
  2. ARICEPT [Concomitant]
     Active Substance: DONEPEZIL HYDROCHLORIDE
     Indication: DEMENTIA
     Dosage: 10 MG, UNK
  3. POTASSIUM [Concomitant]
     Active Substance: POTASSIUM
     Indication: MUSCLE SPASMS
     Dosage: UNK
  4. PROAIR HFA [Concomitant]
     Active Substance: ALBUTEROL SULFATE
     Indication: DYSPNOEA
     Dosage: 1 DF, AS NEEDED (EVERY FOUR-SIX HOURS, AS NEEDED, 1 CANISTER)
     Route: 055
     Dates: start: 20160725
  5. XELJANZ [Concomitant]
     Active Substance: TOFACITINIB CITRATE
     Dosage: 10 MG, DAILY
     Route: 048
  6. TIZANIDINE HCL [Concomitant]
     Active Substance: TIZANIDINE HYDROCHLORIDE
     Dosage: 4 MG, 3X/DAY
     Route: 048
  7. CYCLOBENZAPRINE HCL [Concomitant]
     Active Substance: CYCLOBENZAPRINE HYDROCHLORIDE
     Indication: MUSCLE SPASMS
     Dosage: 10 MG, AS NEEDED( THREE TIMES DAILY )
     Dates: start: 20160404
  8. VENTOLIN HFA [Concomitant]
     Active Substance: ALBUTEROL SULFATE
     Indication: DYSPNOEA
     Dosage: UNK(1 GRAM AEROSOL SOLN EVERY SIX HOURS, 1 CARTRIDGE(S)
     Dates: start: 20160725
  9. TIZANIDINE HCL [Concomitant]
     Active Substance: TIZANIDINE HYDROCHLORIDE
     Dosage: 2 MG, 3X/DAY (1 ORAL EVERY EIGHT HOURS)
     Route: 048
  10. NAMENDA [Concomitant]
     Active Substance: MEMANTINE HYDROCHLORIDE
     Indication: DEMENTIA
     Dosage: 10 MG, DAILY(1 (ONE) TABLET: DAILY WITH FOOD)
     Dates: start: 20161003
  11. HYTONE [Concomitant]
     Active Substance: HYDROCORTISONE
     Dosage: UNK ((1 APPLICATION EXTERNAL AS DIRECTED))
     Route: 061
  12. DESONIDE. [Concomitant]
     Active Substance: DESONIDE
     Dosage: UNK, 2X/DAY
     Route: 061
  13. ESTRADIOL. [Concomitant]
     Active Substance: ESTRADIOL
     Indication: HORMONE LEVEL ABNORMAL
     Dosage: 1 MG, DAILY
     Dates: start: 20160701
  14. MEDROXYPROGESTERONE ACETATE. [Concomitant]
     Active Substance: MEDROXYPROGESTERONE ACETATE
     Indication: HORMONE LEVEL ABNORMAL
     Dosage: 2.5 MG, DAILY
     Dates: start: 20160701
  15. PHENERGAN [Concomitant]
     Active Substance: PROMETHAZINE HYDROCHLORIDE
     Indication: NAUSEA
     Dosage: 25 MG, AS NEEDED
  16. PROMETHAZINE HCL [Concomitant]
     Active Substance: PROMETHAZINE HYDROCHLORIDE
     Indication: VOMITING
  17. FOLIC ACID. [Concomitant]
     Active Substance: FOLIC ACID
     Dosage: 1 MG, DAILY
     Route: 048
  18. EFFEXOR XR [Suspect]
     Active Substance: VENLAFAXINE HYDROCHLORIDE
     Dosage: 75 MG, 1X/DAY (2 CAPSULES OF THE 37.5MG CAPSULES ONCE A DAY)
     Route: 048
     Dates: start: 2016
  19. MOMETASONE [Concomitant]
     Active Substance: MOMETASONE
     Indication: RHINITIS ALLERGIC
  20. KLOR-CON M10 [Concomitant]
     Active Substance: POTASSIUM CHLORIDE
     Dosage: 10 MEQ, DAILY
     Route: 048
  21. FLUTICASONE PROPIONATE. [Concomitant]
     Active Substance: FLUTICASONE PROPIONATE
     Indication: RHINITIS ALLERGIC
     Dosage: 1 DF, 2X/DAY (50 MCG/ACT, 1 (ONE) SPRAY, SPRAY EACH NOSTRIL, TWO TIMES DAILY, 1 CANISTER, )
     Route: 055
     Dates: start: 20160815
  22. DONEPEZIL HCL [Concomitant]
     Active Substance: DONEPEZIL HYDROCHLORIDE
     Indication: DEMENTIA
     Dosage: 10 MG, DAILY
     Dates: start: 20160104
  23. HYDROXYZINE HCL [Concomitant]
     Active Substance: HYDROXYZINE HYDROCHLORIDE
     Indication: PRURITUS
     Dosage: 25 MG, AS NEEDED (THREE TIMES DAILY )
     Dates: start: 20150901
  24. LIDOCAINE HCL [Concomitant]
     Active Substance: LIDOCAINE HYDROCHLORIDE
     Dosage: 1 DF, AS NEEDED (1 APPLICATION EXTERNAL AS NEEDED)
     Route: 061
  25. RELISTOR [Concomitant]
     Active Substance: METHYLNALTREXONE BROMIDE
     Dosage: UNK(8 MG/0.4 ML SOLUTION, 1 INJECTION SUBCUTANEOUS AS DIRECTED)
     Route: 058
  26. GABAPENTIN. [Concomitant]
     Active Substance: GABAPENTIN
     Dosage: 300 MG, 3X/DAY
     Route: 048
  27. FUROSEMIDE. [Concomitant]
     Active Substance: FUROSEMIDE
     Indication: CARDIAC FAILURE CONGESTIVE
     Dosage: 40 MG, DAILY
  28. PROMETHAZINE HCL [Concomitant]
     Active Substance: PROMETHAZINE HYDROCHLORIDE
     Indication: NAUSEA
     Dosage: 25 MG, (1(ONE) TABLET EVERY SIX TO EIGHT HOURS)
     Dates: start: 20160404
  29. ACICLOVIR [Concomitant]
     Active Substance: ACYCLOVIR
     Dosage: 800 MG, DAILY
     Route: 048
  30. METHOTREXATE. [Concomitant]
     Active Substance: METHOTREXATE
     Dosage: 20 MG, WEEKLY(8 ORAL )
     Route: 048
  31. MEDROXYPROGESTERONE ACETATE. [Concomitant]
     Active Substance: MEDROXYPROGESTERONE ACETATE
     Dosage: 2.5 MG, DAILY
     Dates: start: 20160701

REACTIONS (1)
  - Drug ineffective [Not Recovered/Not Resolved]

NARRATIVE: CASE EVENT DATE: 2016
